FAERS Safety Report 4542521-7 (Version None)
Quarter: 2004Q4

REPORT INFORMATION
  Report Type: 
  Country: None (occurrence: None)
  Receive Date: 20041227
  Receipt Date: 20041214
  Transmission Date: 20050328
  Serious: Yes (Disabling)
  Sender: FDA-Public Use
  Company Number: 2004241319US

PATIENT
  Age: 83 Year
  Sex: Female
  Weight: 49.89 kg

DRUGS (5)
  1. DETROL  TABLET (TOLTERODINE L-TARTRATE0 [Suspect]
     Indication: HYPERTONIC BLADDER
     Dosage: ORAL
     Route: 048
     Dates: start: 19890101, end: 20040930
  2. PREDNISONE [Concomitant]
  3. LOVASTATIN [Concomitant]
  4. LISINOPRIL [Concomitant]
  5. VITAMINS (VITAMINS0 [Concomitant]

REACTIONS (2)
  - BLADDER DISORDER [None]
  - GLAUCOMA [None]
